FAERS Safety Report 12616214 (Version 5)
Quarter: 2016Q4

REPORT INFORMATION
  Report Type: Report from Study
  Country: DE (occurrence: DE)
  Receive Date: 20160802
  Receipt Date: 20161028
  Transmission Date: 20170207
  Serious: Yes (Hospitalization)
  Sender: FDA-Public Use
  Company Number: PHHY2016DE104424

PATIENT
  Sex: Female
  Weight: 64.5 kg

DRUGS (7)
  1. AFINITOR [Suspect]
     Active Substance: EVEROLIMUS
     Indication: BREAST CANCER METASTATIC
     Dosage: 10.0 MG, QD
     Route: 048
     Dates: start: 20130107, end: 20130416
  2. REMESTAN [Concomitant]
     Indication: SLEEP DISORDER
     Dosage: 10 MG, QD (DAILY)
     Route: 065
     Dates: start: 20130424, end: 20130502
  3. AFINITOR [Suspect]
     Active Substance: EVEROLIMUS
     Dosage: 5.0 MG, QD
     Route: 048
     Dates: start: 20130417, end: 20130430
  4. EXEMESTANE. [Concomitant]
     Active Substance: EXEMESTANE
     Indication: BREAST CANCER METASTATIC
     Dosage: 25 MG, QD
     Route: 048
     Dates: start: 20130107, end: 20130529
  5. ZOLPI LICH [Concomitant]
     Indication: SLEEP DISORDER
     Dosage: 10 MG, QD
     Route: 065
     Dates: start: 20130426, end: 20130501
  6. LOESNESIUM [Concomitant]
     Indication: PRODUCT USED FOR UNKNOWN INDICATION
     Dosage: 12 BAGS ONE TIME
     Route: 065
     Dates: start: 20130426, end: 20130426
  7. LAXAN [Concomitant]
     Indication: CONSTIPATION
     Dosage: 8 DROPS ONCE/SINGLE
     Route: 065
     Dates: start: 20130426, end: 20130426

REACTIONS (4)
  - Diplopia [Not Recovered/Not Resolved]
  - Cerebrovascular accident [Not Recovered/Not Resolved]
  - IIIrd nerve paresis [Not Recovered/Not Resolved]
  - Vertigo [Unknown]

NARRATIVE: CASE EVENT DATE: 20130424
